FAERS Safety Report 5723383-9 (Version None)
Quarter: 2008Q2

REPORT INFORMATION
  Report Type: 
  Country: None (occurrence: None)
  Receive Date: 20080429
  Receipt Date: 20080429
  Transmission Date: 20081010
  Serious: Yes (Hospitalization)
  Sender: FDA-Public Use
  Company Number: None

PATIENT
  Age: 85 Year
  Sex: Male
  Weight: 69.55 kg

DRUGS (1)
  1. TERAZOSIN HCL [Suspect]
     Dosage: 2 MG AT BEDTIME PO
     Route: 048
     Dates: start: 20071030, end: 20071203

REACTIONS (1)
  - SYNCOPE [None]
